FAERS Safety Report 9503010 (Version 2)
Quarter: 2013Q3

REPORT INFORMATION
  Report Type: Report from Study
  Country: US (occurrence: US)
  Receive Date: 20130906
  Receipt Date: 20130911
  Transmission Date: 20140515
  Serious: Yes (Death, Hospitalization, Other)
  Sender: FDA-Public Use
  Company Number: US-ASTELLAS-2013US009224

PATIENT
  Age: 68 Year
  Sex: Male
  Weight: 72 kg

DRUGS (2)
  1. ERLOTINIB TABLET [Suspect]
     Indication: ACUTE MYELOID LEUKAEMIA
     Dosage: UNK
     Route: 065
     Dates: start: 20130816, end: 20130830
  2. CYTARABINE [Concomitant]
     Indication: PRODUCT USED FOR UNKNOWN INDICATION
     Dosage: UNK
     Route: 065
     Dates: end: 20130828

REACTIONS (8)
  - Off label use [Unknown]
  - Fatigue [Unknown]
  - Pneumonia fungal [Unknown]
  - Depressed level of consciousness [Unknown]
  - Febrile neutropenia [Unknown]
  - Pneumonia bacterial [Unknown]
  - Death [Fatal]
  - Convulsion [Unknown]
